FAERS Safety Report 4610089-2 (Version None)
Quarter: 2005Q1

REPORT INFORMATION
  Report Type: 
  Country: None (occurrence: None)
  Receive Date: 20050316
  Receipt Date: 20050307
  Transmission Date: 20050727
  Serious: Yes (Hospitalization)
  Sender: FDA-Public Use
  Company Number: AU-SANOFI-SYNTHELABO-A01200501268

PATIENT
  Sex: Male

DRUGS (2)
  1. STILNOX [Suspect]
     Indication: DRUG USE FOR UNKNOWN INDICATION
     Dosage: 20 MG
     Route: 048
     Dates: end: 20030512
  2. OLANZAPINE [Concomitant]
     Dosage: 20 MG
     Route: 065
     Dates: end: 20030512

REACTIONS (2)
  - HEPATITIS [None]
  - JAUNDICE CHOLESTATIC [None]
